FAERS Safety Report 6774649-5 (Version None)
Quarter: 2010Q2

REPORT INFORMATION
  Report Type: 
  Country: None (occurrence: None)
  Receive Date: 20100617
  Receipt Date: 20100609
  Transmission Date: 20101027
  Serious: Yes (Hospitalization)
  Sender: FDA-Public Use
  Company Number: BR-ROCHE-696227

PATIENT
  Sex: Female
  Weight: 65 kg

DRUGS (7)
  1. XENICAL [Suspect]
     Indication: LIPOMATOSIS
     Dosage: START DATE: 2010. CO-INDICATION: CHOLESTEROL CONTROL.
     Route: 065
     Dates: end: 20100301
  2. ANCORON [Concomitant]
  3. WARFARIN SODIUM [Concomitant]
  4. PURAN T4 [Concomitant]
  5. LEVOFLOXACIN [Concomitant]
  6. PRELONE [Concomitant]
  7. FORASEQ [Concomitant]

REACTIONS (5)
  - ASTHMA [None]
  - BLOOD PRESSURE INCREASED [None]
  - HEADACHE [None]
  - PNEUMONIA [None]
  - PROTHROMBIN TIME SHORTENED [None]
